FAERS Safety Report 10089490 (Version 1)
Quarter: 2014Q2

REPORT INFORMATION
  Report Type: Spontaneous
  Country: US (occurrence: None)
  Receive Date: 20140418
  Receipt Date: 20140418
  Transmission Date: 20141212
  Serious: No
  Sender: FDA-Public Use
  Company Number: None

PATIENT
  Age: 50 Year
  Sex: Female
  Weight: 98.88 kg

DRUGS (1)
  1. HYDROXYCHLOROQUINE [Suspect]
     Indication: RHEUMATOID ARTHRITIS
     Dosage: 200 MG 2QD PO
     Route: 048
     Dates: start: 20050601, end: 200509

REACTIONS (7)
  - Diarrhoea [None]
  - Nausea [None]
  - Vomiting [None]
  - Abdominal pain upper [None]
  - Product coating issue [None]
  - Abdominal pain upper [None]
  - Product substitution issue [None]
